FAERS Safety Report 11240416 (Version 1)
Quarter: 2015Q3

REPORT INFORMATION
  Report Type: Spontaneous
  Country: US (occurrence: None)
  Receive Date: 20150701
  Receipt Date: 20150701
  Transmission Date: 20151125
  Serious: Yes (Life-Threatening, Hospitalization)
  Sender: FDA-Public Use
  Company Number: None

PATIENT
  Age: 63 Year
  Sex: Male
  Weight: 182 kg

DRUGS (1)
  1. PIPERACILLIN/TAZOBACTAM [Suspect]
     Active Substance: PIPERACILLIN SODIUM\TAZOBACTAM SODIUM
     Indication: INFECTION
     Route: 042
     Dates: start: 20150422, end: 20150428

REACTIONS (7)
  - Alanine aminotransferase increased [None]
  - Drug hypersensitivity [None]
  - Rash maculo-papular [None]
  - Aspartate aminotransferase increased [None]
  - Eosinophilia [None]
  - Azotaemia [None]
  - Pyrexia [None]

NARRATIVE: CASE EVENT DATE: 20150426
